FAERS Safety Report 11911009 (Version 1)
Quarter: 2016Q1

REPORT INFORMATION
  Report Type: Spontaneous
  Country: US (occurrence: None)
  Receive Date: 20160111
  Receipt Date: 20160111
  Transmission Date: 20160526
  Serious: Yes (Other)
  Sender: FDA-Public Use
  Company Number: None

PATIENT
  Age: 58 Year
  Sex: Female
  Weight: 58.97 kg

DRUGS (1)
  1. COMPOUND W ONE STEP WART REMOVER MAXIMUM STRENGTH DSTR MEDTECH PRODS, A PRESTIGE CO [Suspect]
     Active Substance: SALICYLIC ACID
     Indication: SKIN PAPILLOMA
     Dosage: CHANGE EVERY 48 HOURS    APPLIED TO A SURFACE, USUALLY THE SKIN
     Dates: start: 20160101, end: 20160107

REACTIONS (5)
  - Device ineffective [None]
  - Product adhesion issue [None]
  - Device dislocation [None]
  - Pain in extremity [None]
  - Skin injury [None]

NARRATIVE: CASE EVENT DATE: 20160107
